FAERS Safety Report 22168245 (Version 3)
Quarter: 2023Q2

REPORT INFORMATION
  Report Type: Spontaneous
  Country: US (occurrence: US)
  Receive Date: 20230403
  Receipt Date: 20230419
  Transmission Date: 20230722
  Serious: No
  Sender: FDA-Public Use
  Company Number: US-PFIZER INC-2020496122

PATIENT
  Age: 17 Year
  Sex: Male

DRUGS (3)
  1. EUCRISA [Suspect]
     Active Substance: CRISABOROLE
     Dosage: UNK, 2X/DAY
     Route: 061
  2. EUCRISA [Suspect]
     Active Substance: CRISABOROLE
     Dosage: APPLY TO ARMS, LEGS, BACK AND TRUNK (MISSING FREQUENCY)
     Route: 061
  3. EUCRISA [Suspect]
     Active Substance: CRISABOROLE
     Dosage: UNK, AS NEEDED (APPLY BID PRN TO AFFECTED AREAS (HANDS, ELBOWS, KNEE)
     Route: 061

REACTIONS (2)
  - Skin disorder [Unknown]
  - Product prescribing issue [Unknown]
